FAERS Safety Report 9807337 (Version 1)
Quarter: 2014Q1

REPORT INFORMATION
  Report Type: Spontaneous
  Country: US (occurrence: US)
  Receive Date: 20140110
  Receipt Date: 20140110
  Transmission Date: 20141002
  Serious: Yes (Other)
  Sender: FDA-Public Use
  Company Number: US-BRISTOL-MYERS SQUIBB COMPANY-19968593

PATIENT
  Sex: Female

DRUGS (3)
  1. ABILIFY TABS [Suspect]
     Indication: BIPOLAR DISORDER
  2. LITHIUM [Concomitant]
  3. PROZAC [Concomitant]

REACTIONS (2)
  - Mania [Unknown]
  - Wrong technique in drug usage process [Unknown]
